FAERS Safety Report 19233281 (Version 1)
Quarter: 2021Q2

REPORT INFORMATION
  Report Type: Spontaneous
  Country: US (occurrence: US)
  Receive Date: 20210507
  Receipt Date: 20210507
  Transmission Date: 20210717
  Serious: No
  Sender: FDA-Public Use
  Company Number: US-SA-2021SA148624

PATIENT
  Age: 60 Year
  Sex: Male

DRUGS (2)
  1. IPOL [Suspect]
     Active Substance: POLIOVIRUS TYPE 1 ANTIGEN (FORMALDEHYDE INACTIVATED)\POLIOVIRUS TYPE 2 ANTIGEN (FORMALDEHYDE INACTIVATED)\POLIOVIRUS TYPE 3 ANTIGEN (FORMALDEHYDE INACTIVATED)\POLIOVIRUS VACCINE INACTIVATED MONKEY KIDNEY CELL
     Indication: IMMUNISATION
     Dosage: .1 ML
     Route: 023
     Dates: start: 20210405, end: 20210405
  2. TUBERSOL [Suspect]
     Active Substance: TUBERCULIN PURIFIED PROTEIN DERIVATIVE
     Indication: IMMUNISATION
     Dosage: UNK
     Route: 065

REACTIONS (2)
  - Product administered to patient of inappropriate age [Unknown]
  - Wrong product administered [Unknown]

NARRATIVE: CASE EVENT DATE: 20210405
